FAERS Safety Report 5358183-5 (Version None)
Quarter: 2007Q2

REPORT INFORMATION
  Report Type: 
  Country: None (occurrence: None)
  Receive Date: 20070530
  Receipt Date: 20061031
  Transmission Date: 20071010
  Serious: Yes (Hospitalization)
  Sender: FDA-Public Use
  Company Number: US200605005372

PATIENT
  Age: 34 Year
  Sex: Male
  Weight: 99.8 kg

DRUGS (2)
  1. ZYPREXA [Suspect]
     Dosage: 20 MG
     Dates: start: 20011001, end: 20020301
  2. QUETIAPINE FUMARATE [Concomitant]

REACTIONS (5)
  - BLOOD CHOLESTEROL ABNORMAL [None]
  - BLOOD TRIGLYCERIDES INCREASED [None]
  - DIABETES MELLITUS [None]
  - HYPERTENSION [None]
  - METABOLIC DISORDER [None]
